FAERS Safety Report 4718847-0 (Version None)
Quarter: 2005Q3

REPORT INFORMATION
  Report Type: 
  Country: None (occurrence: None)
  Receive Date: 20050719
  Receipt Date: 20050705
  Transmission Date: 20060218
  Serious: Yes (Death)
  Sender: FDA-Public Use
  Company Number: US_0507119822

PATIENT
  Sex: Male

DRUGS (1)
  1. OLANZAPINE [Suspect]
     Indication: DELIRIUM
     Dosage: 10 MG DAY
     Route: 048

REACTIONS (1)
  - CARDIAC FAILURE [None]
